FAERS Safety Report 9886193 (Version 1)
Quarter: 2014Q1

REPORT INFORMATION
  Report Type: Spontaneous
  Country: US (occurrence: US)
  Receive Date: 20140210
  Receipt Date: 20140210
  Transmission Date: 20141002
  Serious: Yes (Other)
  Sender: FDA-Public Use
  Company Number: US-PFIZER INC-2014034837

PATIENT
  Sex: Male

DRUGS (3)
  1. QUILLIVANT XR [Suspect]
     Dosage: UNK
  2. QUILLIVANT XR [Suspect]
     Dosage: UNK
  3. AMOXICILLIN [Suspect]
     Indication: ORAL INFECTION
     Dosage: UNK

REACTIONS (5)
  - Haemorrhage [Unknown]
  - Pruritus [Unknown]
  - Oral infection [Unknown]
  - Rash [Unknown]
  - Pain [Unknown]
